FAERS Safety Report 5952117-8 (Version None)
Quarter: 2008Q4

REPORT INFORMATION
  Report Type: 
  Country: None (occurrence: None)
  Receive Date: 20081113
  Receipt Date: 20080505
  Transmission Date: 20090506
  Serious: No
  Sender: FDA-Public Use
  Company Number: A0726183A

PATIENT
  Age: 57 Year
  Sex: Female

DRUGS (4)
  1. COREG [Suspect]
     Indication: HYPERTENSION
     Dosage: 40MG PER DAY
     Route: 048
     Dates: start: 20080401
  2. INSULIN [Concomitant]
  3. ZETIA [Concomitant]
  4. GEMFIBROZIL [Concomitant]

REACTIONS (3)
  - FEELING ABNORMAL [None]
  - MYALGIA [None]
  - NAUSEA [None]
